FAERS Safety Report 5082948-0 (Version None)
Quarter: 2006Q3

REPORT INFORMATION
  Report Type: 
  Country: None (occurrence: None)
  Receive Date: 20060817
  Receipt Date: 20060811
  Transmission Date: 20061208
  Serious: Yes (Congenital Anomaly)
  Sender: FDA-Public Use
  Company Number: FR-MERCK-0608FRA00025B1

PATIENT

DRUGS (7)
  1. ALDOMET [Suspect]
     Indication: HYPERTENSION
  2. ASPIRIN [Concomitant]
  3. FUROSEMIDE [Concomitant]
     Indication: HYPERTENSION
  4. CALCIUM CARBONATE [Concomitant]
     Indication: OSTEOPOROSIS
  5. ATENOLOL [Concomitant]
     Indication: HYPERTENSION
  6. INSULIN [Concomitant]
     Indication: DIABETES MELLITUS INSULIN-DEPENDENT
  7. EPOETIN BETA [Concomitant]
     Indication: ANAEMIA

REACTIONS (3)
  - ABORTION INDUCED [None]
  - CAUDAL REGRESSION SYNDROME [None]
  - DRUG EXPOSURE DURING PREGNANCY [None]
